FAERS Safety Report 10069351 (Version 3)
Quarter: 2014Q2

REPORT INFORMATION
  Report Type: Spontaneous
  Country: CN (occurrence: CN)
  Receive Date: 20140410
  Receipt Date: 20140421
  Transmission Date: 20141212
  Serious: Yes (Other)
  Sender: FDA-Public Use
  Company Number: PHHY2014CN036248

PATIENT
  Age: 58 Year
  Sex: Male

DRUGS (2)
  1. LOTENSIN [Suspect]
     Indication: HYPERTENSION
     Dosage: 1 DF, PER DAY
     Route: 048
  2. LOTENSIN [Suspect]
     Dosage: 2 DF
     Route: 048

REACTIONS (2)
  - Blood pressure systolic increased [Unknown]
  - Drug ineffective [Unknown]
